FAERS Safety Report 8929808 (Version 2)
Quarter: 2012Q4

REPORT INFORMATION
  Report Type: 
  Country: US (occurrence: US)
  Receive Date: 20121121
  Receipt Date: 20121212
  Transmission Date: 20130627
  Serious: Yes (Death)
  Sender: FDA-Public Use
  Company Number: US-ASTELLAS-1106251

PATIENT
  Age: 64 Year
  Sex: Male

DRUGS (3)
  1. TARCEVA [Suspect]
     Indication: GALLBLADDER CANCER
     Route: 048
     Dates: start: 200811
  2. TARCEVA [Suspect]
     Indication: BILE DUCT CANCER
  3. TARCEVA [Suspect]
     Indication: COLON CANCER METASTATIC

REACTIONS (1)
  - Disease progression [Fatal]
